FAERS Safety Report 13179558 (Version 1)
Quarter: 2017Q1

REPORT INFORMATION
  Report Type: Spontaneous
  Country: US (occurrence: US)
  Receive Date: 20170201
  Receipt Date: 20170201
  Transmission Date: 20170428
  Serious: No
  Sender: FDA-Public Use
  Company Number: None

PATIENT
  Age: 42 Year
  Sex: Female
  Weight: 94.5 kg

DRUGS (2)
  1. IBUPROFEN. [Concomitant]
     Active Substance: IBUPROFEN
  2. JOLIVETTE [Suspect]
     Active Substance: NORETHINDRONE
     Indication: CONTRACEPTION
     Dosage: ?          QUANTITY:28 TABLET(S);?
     Route: 048
     Dates: start: 20170118, end: 20170201

REACTIONS (1)
  - Alopecia [None]

NARRATIVE: CASE EVENT DATE: 20170201
